FAERS Safety Report 16768261 (Version 1)
Quarter: 2019Q3

REPORT INFORMATION
  Report Type: Spontaneous
  Country: CA (occurrence: CA)
  Receive Date: 20190903
  Receipt Date: 20190903
  Transmission Date: 20191005
  Serious: Yes (Life-Threatening, Other)
  Sender: FDA-Public Use
  Company Number: CA-TEVA-2019-CA-1100760

PATIENT
  Age: 46 Year
  Sex: Female
  Weight: 93 kg

DRUGS (6)
  1. MELATONIN [Concomitant]
     Active Substance: MELATONIN
     Indication: PRODUCT USED FOR UNKNOWN INDICATION
  2. MARIJUANA [Concomitant]
     Active Substance: CANNABIS SATIVA SUBSP. INDICA TOP
     Indication: PRODUCT USED FOR UNKNOWN INDICATION
  3. MIRTAZAPINE. [Suspect]
     Active Substance: MIRTAZAPINE
     Indication: AFFECTIVE DISORDER
  4. MIRTAZAPINE. [Suspect]
     Active Substance: MIRTAZAPINE
     Indication: AFFECTIVE DISORDER
  5. MIRTAZAPINE. [Suspect]
     Active Substance: MIRTAZAPINE
     Indication: SLEEP DISORDER THERAPY
  6. MIRTAZAPINE. [Suspect]
     Active Substance: MIRTAZAPINE
     Indication: SLEEP DISORDER THERAPY
     Dosage: 3.75 MILLIGRAM DAILY;
     Route: 048

REACTIONS (20)
  - Feeling abnormal [Recovered/Resolved]
  - Pharyngeal oedema [Recovered/Resolved]
  - Throat irritation [Recovered/Resolved]
  - Altered state of consciousness [Recovered/Resolved]
  - Blood pressure fluctuation [Recovered/Resolved]
  - Feeling jittery [Recovered/Resolved]
  - Oral discomfort [Recovered/Resolved]
  - Pollakiuria [Recovered/Resolved]
  - Skin burning sensation [Recovered/Resolved]
  - Yawning [Recovered/Resolved]
  - Balance disorder [Recovered/Resolved]
  - Erythema [Recovered/Resolved]
  - Mouth swelling [Recovered/Resolved]
  - Malaise [Recovered/Resolved]
  - Dry mouth [Recovered/Resolved]
  - Hypersensitivity [Recovered/Resolved]
  - Palpitations [Recovered/Resolved]
  - Sudden onset of sleep [Recovered/Resolved]
  - Heart rate increased [Recovered/Resolved]
  - Hypertension [Recovered/Resolved]
